FAERS Safety Report 14341643 (Version 1)
Quarter: 2018Q1

REPORT INFORMATION
  Report Type: Spontaneous
  Country: US (occurrence: US)
  Receive Date: 20180102
  Receipt Date: 20180102
  Transmission Date: 20180509
  Serious: No
  Sender: FDA-Public Use
  Company Number: US-ASTRAZENECA-2017SF31105

PATIENT
  Age: 670 Month
  Sex: Female
  Weight: 117.9 kg

DRUGS (3)
  1. JANUVIA [Concomitant]
     Active Substance: SITAGLIPTIN PHOSPHATE
     Route: 048
     Dates: start: 201610, end: 201707
  2. METFORMIN [Concomitant]
     Active Substance: METFORMIN HYDROCHLORIDE
     Route: 048
  3. FARXIGA [Suspect]
     Active Substance: DAPAGLIFLOZIN PROPANEDIOL
     Indication: GLYCOSYLATED HAEMOGLOBIN INCREASED
     Dosage: EVERY DAY
     Route: 048
     Dates: start: 201704, end: 20170701

REACTIONS (11)
  - Diarrhoea [Unknown]
  - Dehydration [Unknown]
  - Platelet count increased [Unknown]
  - Loss of personal independence in daily activities [Unknown]
  - Weight decreased [Unknown]
  - Anorectal discomfort [Unknown]
  - Infected cyst [Unknown]
  - Proctalgia [Unknown]
  - Anal haemorrhage [Unknown]
  - Glycosylated haemoglobin increased [Unknown]
  - Blood potassium decreased [Unknown]

NARRATIVE: CASE EVENT DATE: 201704
